FAERS Safety Report 8487923-1 (Version None)
Quarter: 2012Q3

REPORT INFORMATION
  Report Type: 
  Country: None (occurrence: None)
  Receive Date: 20120705
  Receipt Date: 20120628
  Transmission Date: 20120928
  Serious: Yes (Other)
  Sender: FDA-Public Use
  Company Number: US-PFIZER INC-2012156309

PATIENT
  Sex: Female

DRUGS (6)
  1. MEVACOR [Concomitant]
     Dosage: 20 MG TABLET,1 TABLET BY MOUTH NIGHTLY.
     Route: 048
  2. LEVOTHYROXINE SODIUM [Concomitant]
     Dosage: 125 UG, 1X/DAY, BY MOUTH 6 DAYS A WEEK AND NONE ON THE 7TH
     Route: 048
  3. TYLENOL W/ CODEINE NO. 3 [Concomitant]
     Dosage: 300-30 MG PER TABLET, 4X/DAY
     Route: 048
  4. GABAPENTIN [Suspect]
     Dosage: 300 MG, 3X/DAY
     Route: 048
  5. ZOVIRAX [Concomitant]
     Dosage: 200 MG, 4X/DAY
     Route: 048
  6. VITAMIN B-12 [Concomitant]
     Dosage: 2500 UG, 1X/DAY
     Route: 060

REACTIONS (6)
  - ESSENTIAL HYPERTENSION [None]
  - HYPOTHYROIDISM [None]
  - DIVERTICULUM INTESTINAL [None]
  - BLOOD CHOLESTEROL INCREASED [None]
  - HERPES ZOSTER [None]
  - BLADDER PROLAPSE [None]
